FAERS Safety Report 25830922 (Version 1)
Quarter: 2025Q3

REPORT INFORMATION
  Report Type: Report from Study
  Country: US (occurrence: US)
  Receive Date: 20250922
  Receipt Date: 20250922
  Transmission Date: 20251021
  Serious: No
  Sender: SUNOVION
  Company Number: US-SMPA-2025SPA011779

PATIENT
  Age: 64 Year
  Sex: Male

DRUGS (9)
  1. ORGOVYX [Suspect]
     Active Substance: RELUGOLIX
     Indication: Prostate cancer
     Route: 048
  2. ORGOVYX [Suspect]
     Active Substance: RELUGOLIX
     Route: 048
  3. ADVIL [Concomitant]
     Active Substance: IBUPROFEN
  4. HERBALS [Concomitant]
     Active Substance: HERBALS
  5. FISH OIL [Concomitant]
     Active Substance: FISH OIL
  6. K2- D3 [Concomitant]
  7. MELOXICAM [Concomitant]
     Active Substance: MELOXICAM
  8. NUBEQA [Concomitant]
     Active Substance: DAROLUTAMIDE
  9. TYLENOL [Concomitant]
     Active Substance: ACETAMINOPHEN

REACTIONS (1)
  - Hot flush [Unknown]
